FAERS Safety Report 17003892 (Version 10)
Quarter: 2022Q1

REPORT INFORMATION
  Report Type: Spontaneous
  Country: US (occurrence: US)
  Receive Date: 20191107
  Receipt Date: 20220110
  Transmission Date: 20220423
  Serious: Yes (Other)
  Sender: FDA-Public Use
  Company Number: US-PFIZER INC-2019477726

PATIENT
  Age: 34 Year
  Sex: Female

DRUGS (3)
  1. SKELAXIN [Suspect]
     Active Substance: METAXALONE
     Indication: Muscle relaxant therapy
     Dosage: 800 MG
  2. SKELAXIN [Suspect]
     Active Substance: METAXALONE
     Dosage: 800 MG, AS NEEDED [800 MG 4X/DAY (QID) AS NEEDED (PRN)]
     Route: 048
  3. SKELAXIN [Suspect]
     Active Substance: METAXALONE
     Dosage: 800 G, AS NEEDED (STRENGTH: 800 G, 1 PO QID PRN)
     Route: 048

REACTIONS (13)
  - Impaired gastric emptying [Unknown]
  - Mental impairment [Unknown]
  - Vomiting [Unknown]
  - Illness [Unknown]
  - Nasopharyngitis [Unknown]
  - Influenza [Unknown]
  - Bronchitis [Unknown]
  - Asthenia [Unknown]
  - Loss of personal independence in daily activities [Unknown]
  - Emotional distress [Unknown]
  - Impaired driving ability [Unknown]
  - Swelling [Unknown]
  - Product prescribing error [Unknown]
